FAERS Safety Report 25575180 (Version 2)
Quarter: 2025Q3

REPORT INFORMATION
  Report Type: Spontaneous
  Country: US (occurrence: US)
  Receive Date: 20250718
  Receipt Date: 20250827
  Transmission Date: 20251020
  Serious: No
  Sender: TOLMAR
  Company Number: US-Tolmar-TLM-2025-03564

PATIENT
  Sex: Female
  Weight: 31.82 kg

DRUGS (2)
  1. FENSOLVI [Suspect]
     Active Substance: LEUPROLIDE ACETATE
     Indication: Puberty
  2. DEVICE [Suspect]
     Active Substance: DEVICE
     Indication: Puberty

REACTIONS (6)
  - Product dose omission issue [Unknown]
  - Wrong technique in product usage process [Unknown]
  - Device leakage [Unknown]
  - Intercepted product preparation error [Unknown]
  - Product packaging quantity issue [Unknown]
  - Product quality issue [Unknown]
